FAERS Safety Report 7540421-1 (Version None)
Quarter: 2011Q2

REPORT INFORMATION
  Report Type: 
  Country: None (occurrence: None)
  Receive Date: 20110610
  Receipt Date: 20110607
  Transmission Date: 20111010
  Serious: Yes (Other)
  Sender: FDA-Public Use
  Company Number: A0930540A

PATIENT
  Age: 76 Year
  Sex: Female

DRUGS (2)
  1. DIABETES MEDICATION [Suspect]
     Indication: DIABETES MELLITUS
  2. ALLI [Suspect]
     Indication: WEIGHT LOSS DIET
     Route: 048
     Dates: start: 20110604, end: 20110606

REACTIONS (3)
  - DRUG INTERACTION [None]
  - BLOOD GLUCOSE INCREASED [None]
  - DIABETES MELLITUS [None]
